FAERS Safety Report 14231851 (Version 2)
Quarter: 2018Q3

REPORT INFORMATION
  Report Type: Spontaneous
  Country: US (occurrence: US)
  Receive Date: 20171128
  Receipt Date: 20180712
  Transmission Date: 20181010
  Serious: Yes (Other)
  Sender: FDA-Public Use
  Company Number: US-ASTRAZENECA-2017SF18640

PATIENT
  Age: 527 Month
  Sex: Female
  Weight: 59 kg

DRUGS (14)
  1. NEXIUM [Suspect]
     Active Substance: ESOMEPRAZOLE MAGNESIUM
     Route: 048
     Dates: start: 2010
  2. METFORMIN [Concomitant]
     Active Substance: METFORMIN HYDROCHLORIDE
  3. LISINOPRIL. [Concomitant]
     Active Substance: LISINOPRIL
  4. GLYBURIDE. [Concomitant]
     Active Substance: GLYBURIDE
  5. PRILOSEC [Suspect]
     Active Substance: OMEPRAZOLE MAGNESIUM
     Dosage: 40.0MG UNKNOWN
     Route: 048
     Dates: start: 2010
  6. FUROSEMIDE. [Concomitant]
     Active Substance: FUROSEMIDE
     Dates: start: 2010
  7. REGLAN [Concomitant]
     Active Substance: METOCLOPRAMIDE HYDROCHLORIDE
  8. LASIX [Concomitant]
     Active Substance: FUROSEMIDE
  9. CARVEDILOL. [Concomitant]
     Active Substance: CARVEDILOL
  10. NEXIUM [Suspect]
     Active Substance: ESOMEPRAZOLE MAGNESIUM
     Route: 048
     Dates: start: 20090427
  11. SIMVASTATIN. [Concomitant]
     Active Substance: SIMVASTATIN
  12. LISINOPRIL. [Concomitant]
     Active Substance: LISINOPRIL
  13. TYLENOL [Concomitant]
     Active Substance: ACETAMINOPHEN
     Dates: start: 2012
  14. SPIRONOLACTONE. [Concomitant]
     Active Substance: SPIRONOLACTONE

REACTIONS (2)
  - Chronic kidney disease [Unknown]
  - Acute kidney injury [Unknown]

NARRATIVE: CASE EVENT DATE: 201109
